FAERS Safety Report 6714608-1 (Version None)
Quarter: 2010Q2

REPORT INFORMATION
  Report Type: 
  Country: None (occurrence: None)
  Receive Date: 20100507
  Receipt Date: 20100427
  Transmission Date: 20101027
  Serious: Yes (Death)
  Sender: FDA-Public Use
  Company Number: US-BIOGENIDEC-2010BI012169

PATIENT
  Sex: Female
  Weight: 56 kg

DRUGS (2)
  1. AVONEX [Suspect]
     Indication: MULTIPLE SCLEROSIS
     Route: 030
     Dates: start: 20041101
  2. AVONEX [Suspect]
     Route: 030

REACTIONS (2)
  - CONSTIPATION [None]
  - INTESTINAL PERFORATION [None]
